FAERS Safety Report 12013030 (Version 1)
Quarter: 2016Q1

REPORT INFORMATION
  Report Type: Spontaneous
  Country: US (occurrence: US)
  Receive Date: 20160205
  Receipt Date: 20160205
  Transmission Date: 20160526
  Serious: No
  Sender: FDA-Public Use
  Company Number: US-BAYER-2016-020330

PATIENT
  Age: 3 Year
  Sex: Male

DRUGS (2)
  1. CHILDREN CLARITIN ALLERGY [Suspect]
     Active Substance: LORATADINE
     Indication: HYPERSENSITIVITY
     Dosage: 1 DF (TABLESPOON), ONCE
     Route: 048
     Dates: start: 20160131, end: 20160131
  2. CHILDREN CLARITIN ALLERGY [Suspect]
     Active Substance: LORATADINE
     Indication: HYPERSENSITIVITY
     Dosage: 1 DF (TEASPOON), PRN
     Route: 048

REACTIONS (1)
  - Extra dose administered [None]

NARRATIVE: CASE EVENT DATE: 20160131
